FAERS Safety Report 5395763-5 (Version None)
Quarter: 2007Q3

REPORT INFORMATION
  Report Type: 
  Country: None (occurrence: None)
  Receive Date: 20070724
  Receipt Date: 20070712
  Transmission Date: 20080115
  Serious: Yes (Other)
  Sender: FDA-Public Use
  Company Number: US-PFIZER INC-2006153711

PATIENT
  Age: 62 Year
  Sex: Male
  Weight: 94.3 kg

DRUGS (2)
  1. CELEBREX [Suspect]
     Indication: NECK PAIN
     Route: 048
     Dates: start: 20031023, end: 20041224
  2. CELEBREX [Suspect]
     Indication: ARTHRALGIA

REACTIONS (3)
  - CARDIOVASCULAR DISORDER [None]
  - CEREBROVASCULAR ACCIDENT [None]
  - MYOCARDIAL INFARCTION [None]
